FAERS Safety Report 15309214 (Version 5)
Quarter: 2019Q1

REPORT INFORMATION
  Report Type: Spontaneous
  Country: RO (occurrence: RO)
  Receive Date: 20180823
  Receipt Date: 20190227
  Transmission Date: 20190417
  Serious: Yes (Other)
  Sender: FDA-Public Use
  Company Number: RO-AUROBINDO-AUR-APL-2018-042892

PATIENT

DRUGS (4)
  1. NEOSTIGMINE. [Suspect]
     Active Substance: NEOSTIGMINE METHYLSULFATE
     Indication: MYASTHENIA GRAVIS
     Dosage: 45 MILLIGRAM, ONCE A DAY, 15 MG, TID
     Route: 065
  2. ROSUVASTATIN FILM-COATED TABLET [Suspect]
     Active Substance: ROSUVASTATIN CALCIUM
     Indication: BLOOD CHOLESTEROL INCREASED
     Dosage: 5 MILLIGRAM, ONCE A DAY, 5 MG, QD
     Route: 048
  3. PYRIDOSTIGMINE [Suspect]
     Active Substance: PYRIDOSTIGMINE
     Indication: MYASTHENIA GRAVIS
     Dosage: 60 MG, TID
     Route: 065
  4. PYRIDOSTIGMINE [Suspect]
     Active Substance: PYRIDOSTIGMINE
     Dosage: 240 UNK
     Route: 065

REACTIONS (10)
  - Abdominal pain upper [Unknown]
  - Intentional product use issue [Unknown]
  - Myopathy [Unknown]
  - Myasthenia gravis [Recovering/Resolving]
  - Cholinergic syndrome [Unknown]
  - Drug abuse [Unknown]
  - Intentional product misuse [Unknown]
  - Nausea [Unknown]
  - Condition aggravated [Unknown]
  - Intentional overdose [Unknown]

NARRATIVE: CASE EVENT DATE: 2018
